FAERS Safety Report 16078074 (Version 1)
Quarter: 2019Q1

REPORT INFORMATION
  Report Type: Spontaneous
  Country: CN (occurrence: CN)
  Receive Date: 20190315
  Receipt Date: 20190315
  Transmission Date: 20190418
  Serious: Yes (Other)
  Sender: FDA-Public Use
  Company Number: CN-PFIZER INC-2019108018

PATIENT
  Age: 10 Year
  Sex: Male

DRUGS (2)
  1. MEDROL [Suspect]
     Active Substance: METHYLPREDNISOLONE
     Indication: HISTIOCYTIC NECROTISING LYMPHADENITIS
     Dosage: 4 DF, 3X/DAY
     Route: 048
     Dates: start: 20190226, end: 20190302
  2. STRONGER NEO MINOPHAGEN C [Concomitant]
     Indication: LIVER DISORDER
     Dosage: 25 MG, 3X/DAY
     Route: 048
     Dates: start: 20190226, end: 20190302

REACTIONS (3)
  - Hepatic enzyme increased [Recovering/Resolving]
  - Pruritus [Recovering/Resolving]
  - Rash [Recovering/Resolving]

NARRATIVE: CASE EVENT DATE: 20190301
